FAERS Safety Report 10659187 (Version 2)
Quarter: 2014Q4

REPORT INFORMATION
  Report Type: Spontaneous
  Country: US (occurrence: US)
  Receive Date: 20141217
  Receipt Date: 20141217
  Transmission Date: 20150529
  Serious: Yes (Hospitalization)
  Sender: FDA-Public Use
  Company Number: US-PERRIGO-14US012274

PATIENT
  Age: 40 Year
  Sex: Female
  Weight: 95.24 kg

DRUGS (11)
  1. IBUPROFEN 200MG 517 [Suspect]
     Active Substance: IBUPROFEN
     Indication: URTICARIA
     Dosage: 400 MG, SINGLE
     Route: 048
     Dates: start: 20141009, end: 20141009
  2. LORATADINE 10 MG 612 [Suspect]
     Active Substance: LORATADINE
     Indication: SEASONAL ALLERGY
     Dosage: 10 MG, QD
     Route: 048
     Dates: start: 201407, end: 20141015
  3. MULTIVITAMIN                       /07504101/ [Suspect]
     Active Substance: VITAMINS
     Indication: SUPPLEMENTATION THERAPY
     Dosage: UNK, QD
     Route: 048
     Dates: end: 20141015
  4. VITAMIN D                          /00107901/ [Concomitant]
     Active Substance: ERGOCALCIFEROL
     Indication: SUPPLEMENTATION THERAPY
     Route: 048
  5. LANSOPRAZOLE. [Concomitant]
     Active Substance: LANSOPRAZOLE
     Indication: GASTROOESOPHAGEAL REFLUX DISEASE
     Route: 048
  6. IBUPROFEN 200MG 517 [Suspect]
     Active Substance: IBUPROFEN
     Dosage: UNK, PRN
     Route: 048
     Dates: start: 2014, end: 2014
  7. CHOLESTYRAMINE. [Suspect]
     Active Substance: CHOLESTYRAMINE
     Indication: DIARRHOEA
     Dosage: 12 TO 16 G, QD
     Route: 048
     Dates: start: 201408, end: 20141015
  8. VITAMIN B12 [Concomitant]
     Active Substance: CYANOCOBALAMIN
     Indication: SUPPLEMENTATION THERAPY
     Dosage: UNK, UNK
     Route: 048
  9. IBUPROFEN 200MG 517 [Suspect]
     Active Substance: IBUPROFEN
     Indication: SWELLING
     Dosage: 400 MG, SINGLE
     Route: 048
     Dates: start: 20140913, end: 20140913
  10. CHOLESTYRAMINE. [Suspect]
     Active Substance: CHOLESTYRAMINE
     Dosage: 12 TO 16 G, QD
     Route: 048
     Dates: start: 201410
  11. FEXOFENADINE [Suspect]
     Active Substance: FEXOFENADINE\FEXOFENADINE HYDROCHLORIDE
     Indication: URTICARIA
     Dosage: 180 MG, QD
     Route: 048
     Dates: start: 20140916, end: 20141015

REACTIONS (5)
  - Reaction to drug excipients [Recovering/Resolving]
  - Anaphylactic shock [Recovered/Resolved]
  - Wound [Recovered/Resolved]
  - Off label use [Recovered/Resolved]
  - Hypersensitivity [Recovered/Resolved]

NARRATIVE: CASE EVENT DATE: 20140830
